FAERS Safety Report 6689054-X (Version None)
Quarter: 2010Q2

REPORT INFORMATION
  Report Type: 
  Country: None (occurrence: None)
  Receive Date: 20100420
  Receipt Date: 20100415
  Transmission Date: 20101027
  Serious: Yes (Death, Hospitalization)
  Sender: FDA-Public Use
  Company Number: US-WYE-H14611410

PATIENT
  Age: 65 Year
  Sex: Male

DRUGS (2)
  1. TORISEL [Suspect]
     Indication: HEPATIC NEOPLASM MALIGNANT
     Dosage: 25 MG DAYS 1, 8, 15 AND 22
     Route: 042
     Dates: start: 20100324, end: 20100324
  2. BEVACIZUMAB [Suspect]
     Dosage: 10 MG/KG OVER 30 - 90 MINUTES ON DAYS 1 AND 15
     Route: 042
     Dates: start: 20100324, end: 20100324

REACTIONS (3)
  - METABOLIC ACIDOSIS [None]
  - PERITONITIS [None]
  - RENAL FAILURE ACUTE [None]
